FAERS Safety Report 13513702 (Version 2)
Quarter: 2024Q3

REPORT INFORMATION
  Report Type: Spontaneous
  Country: OM (occurrence: OM)
  Receive Date: 20170504
  Receipt Date: 20240917
  Transmission Date: 20241016
  Serious: Yes (Other)
  Sender: ACCORD
  Company Number: OM-MLMSERVICE-20170417-0594823-1

PATIENT
  Age: 12 Year
  Sex: Female

DRUGS (5)
  1. AMLODIPINE [Suspect]
     Active Substance: AMLODIPINE BESYLATE
     Indication: Hypertension
  2. MYCOPHENOLATE MOFETIL [Suspect]
     Active Substance: MYCOPHENOLATE MOFETIL
     Indication: Graft versus host disease
  3. TACROLIMUS [Suspect]
     Active Substance: TACROLIMUS
     Indication: Graft versus host disease
  4. ATENOLOL [Concomitant]
     Active Substance: ATENOLOL
     Indication: Hypertension
  5. PREDNISOLONE [Concomitant]
     Active Substance: PREDNISOLONE
     Indication: Graft versus host disease

REACTIONS (6)
  - Renal tubular dysfunction [Unknown]
  - Electrolyte imbalance [Unknown]
  - Secondary hypertension [Recovered/Resolved]
  - Hyperaldosteronism [Recovering/Resolving]
  - Generalised oedema [Recovering/Resolving]
  - Nephropathy toxic [Unknown]
